FAERS Safety Report 23028014 (Version 1)
Quarter: 2023Q4

REPORT INFORMATION
  Report Type: Spontaneous
  Country: US (occurrence: None)
  Receive Date: 20231004
  Receipt Date: 20231004
  Transmission Date: 20240110
  Serious: Yes (Hospitalization)
  Sender: FDA-Public Use
  Company Number: None

PATIENT
  Sex: Female

DRUGS (19)
  1. NUCALA [Suspect]
     Active Substance: MEPOLIZUMAB
     Indication: Asthma
     Dosage: FREQUENCY : MONTHLY;?
     Route: 058
     Dates: start: 20230706
  2. ALBUTEROL AER HFA [Concomitant]
  3. AZELASTINE [Concomitant]
  4. BACLOFEN [Concomitant]
     Active Substance: BACLOFEN
  5. DIAZEPAM [Concomitant]
     Active Substance: DIAZEPAM
  6. EPINEPHRINE [Concomitant]
     Active Substance: EPINEPHRINE
  7. FLUCONAZOLE SUS [Concomitant]
  8. FLUCONAZOLE TAB [Concomitant]
  9. GABAPENTIN [Concomitant]
     Active Substance: GABAPENTIN
  10. MELOXICAM [Concomitant]
     Active Substance: MELOXICAM
  11. MONTELUKAST [Concomitant]
     Active Substance: MONTELUKAST SODIUM
  12. OMEPRAZOLE [Concomitant]
     Active Substance: OMEPRAZOLE
  13. ONDANSETRON [Concomitant]
     Active Substance: ONDANSETRON
  14. PREDNISONE [Concomitant]
     Active Substance: PREDNISONE
  15. RITUXAN [Concomitant]
     Active Substance: RITUXIMAB
  16. ROSUVASTATIN [Concomitant]
     Active Substance: ROSUVASTATIN
  17. SUNOSI [Concomitant]
     Active Substance: SOLRIAMFETOL
  18. VALACYCLOVIR [Concomitant]
     Active Substance: VALACYCLOVIR HYDROCHLORIDE
  19. ZAFIRLUKAST [Concomitant]
     Active Substance: ZAFIRLUKAST

REACTIONS (1)
  - Bronchospasm [None]
